FAERS Safety Report 9399226 (Version 1)
Quarter: 2013Q3

REPORT INFORMATION
  Report Type: Spontaneous
  Country: FR (occurrence: None)
  Receive Date: 20130709
  Receipt Date: 20130709
  Transmission Date: 20140515
  Serious: Yes (Life-Threatening, Hospitalization)
  Sender: FDA-Public Use
  Company Number: 2013/139

PATIENT
  Age: 28 Year
  Sex: Male

DRUGS (3)
  1. VALPROIC ACID [Suspect]
     Indication: GRAND MAL CONVULSION
     Route: 048
  2. MIDAZOLAM (NO PREF NAME) [Concomitant]
  3. SUFENTANIL INFUSIONS (NO PREF NAME) [Concomitant]

REACTIONS (2)
  - Encephalopathy [None]
  - Subdural haematoma [None]
